FAERS Safety Report 5213076-9 (Version None)
Quarter: 2007Q1

REPORT INFORMATION
  Report Type: 
  Country: None (occurrence: None)
  Receive Date: 20070119
  Receipt Date: 20070109
  Transmission Date: 20070707
  Serious: Yes (Hospitalization)
  Sender: FDA-Public Use
  Company Number: DE-ROCHE-468406

PATIENT
  Age: 37 Year
  Sex: Male

DRUGS (7)
  1. PEG-INTERFERON A-2A (RO 25-8310) [Suspect]
     Route: 058
     Dates: start: 20060909
  2. RIBAVIRIN [Suspect]
     Route: 048
     Dates: start: 20060909, end: 20061014
  3. RIBAVIRIN [Suspect]
     Route: 048
     Dates: start: 20061018
  4. BLINDED THYMOSIN ALFA 1 [Suspect]
     Route: 058
     Dates: start: 20060906, end: 20061013
  5. BLINDED THYMOSIN ALFA 1 [Suspect]
     Route: 058
     Dates: start: 20061018
  6. VENTOLAIR [Suspect]
     Dosage: ORAL SPRAY.
     Route: 048
     Dates: start: 20010615
  7. SALBULAIR [Suspect]
     Dosage: ORAL SPRAY.
     Route: 048
     Dates: start: 20010615

REACTIONS (1)
  - HYPERVENTILATION [None]
